FAERS Safety Report 18554906 (Version 1)
Quarter: 2020Q4

REPORT INFORMATION
  Report Type: Spontaneous
  Country: US (occurrence: US)
  Receive Date: 20201127
  Receipt Date: 20201127
  Transmission Date: 20210114
  Serious: No
  Sender: FDA-Public Use
  Company Number: US-VERTEX PHARMACEUTICALS-2020-023205

PATIENT
  Sex: Female
  Weight: 48 kg

DRUGS (7)
  1. TRIKAFTA [Suspect]
     Active Substance: ELEXACAFTOR\IVACAFTOR\TEZACAFTOR
     Indication: CYSTIC FIBROSIS
     Dosage: (ELEXACAFTOR 100 MG, TEZACAFTOR 50 MG, IVACAFTOR 75 MG AND IVACAFTOR 150 MG), BID
     Route: 048
     Dates: start: 201910
  2. MIRALAX [Concomitant]
     Active Substance: POLYETHYLENE GLYCOL 3350
  3. ZENPEP [Concomitant]
     Active Substance: PANCRELIPASE AMYLASE\PANCRELIPASE LIPASE\PANCRELIPASE PROTEASE
     Dosage: 10-32-42K
  4. TYLENOL [Concomitant]
     Active Substance: ACETAMINOPHEN
  5. PULMOZYME [Concomitant]
     Active Substance: DORNASE ALFA
  6. BIOTIN [Concomitant]
     Active Substance: BIOTIN
  7. ALBUTEROL SULFATE. [Concomitant]
     Active Substance: ALBUTEROL SULFATE

REACTIONS (2)
  - Depression [Unknown]
  - Mental disorder [Unknown]

NARRATIVE: CASE EVENT DATE: 2020
